FAERS Safety Report 24587597 (Version 1)
Quarter: 2024Q4

REPORT INFORMATION
  Report Type: Spontaneous
  Country: IL (occurrence: IL)
  Receive Date: 20241107
  Receipt Date: 20241107
  Transmission Date: 20250115
  Serious: Yes (Other)
  Sender: AMGEN
  Company Number: IL-AMGEN-ISRSP2024216747

PATIENT

DRUGS (2)
  1. APREMILAST [Suspect]
     Active Substance: APREMILAST
     Indication: Vasculitis
     Dosage: 60 MILLIGRAM, QD
     Route: 065
  2. APREMILAST [Suspect]
     Active Substance: APREMILAST
     Indication: Off label use

REACTIONS (11)
  - Takayasu^s arteritis [Unknown]
  - Anti-neutrophil cytoplasmic antibody positive vasculitis [Unknown]
  - Henoch-Schonlein purpura [Unknown]
  - Cryoglobulinaemia [Unknown]
  - Giant cell arteritis [Unknown]
  - Behcet^s syndrome [Unknown]
  - Granulomatosis with polyangiitis [Unknown]
  - Eosinophilic granulomatosis with polyangiitis [Unknown]
  - Microscopic polyangiitis [Unknown]
  - Polyarteritis nodosa [Unknown]
  - Off label use [Unknown]
